FAERS Safety Report 4447152-5 (Version None)
Quarter: 2004Q3

REPORT INFORMATION
  Report Type: 
  Country: None (occurrence: None)
  Receive Date: 20040908
  Receipt Date: 20040908
  Transmission Date: 20050211
  Serious: No
  Sender: FDA-Public Use
  Company Number: None

PATIENT

DRUGS (6)
  1. SERZONE [Suspect]
     Indication: DEPRESSION
     Dosage: 1 PO BID
     Route: 048
  2. ZOCOR [Concomitant]
  3. FOSAMAX [Concomitant]
  4. ATENOLOL [Concomitant]
  5. CLINORIL [Concomitant]
  6. AVALIDE [Concomitant]

REACTIONS (5)
  - DEPRESSION [None]
  - DIARRHOEA [None]
  - FATIGUE [None]
  - FEELING ABNORMAL [None]
  - PHARMACEUTICAL PRODUCT COMPLAINT [None]
